FAERS Safety Report 8493297-2 (Version None)
Quarter: 2012Q3

REPORT INFORMATION
  Report Type: 
  Country: None (occurrence: None)
  Receive Date: 20120706
  Receipt Date: 20120626
  Transmission Date: 20120928
  Serious: Yes (Hospitalization)
  Sender: FDA-Public Use
  Company Number: NL-ROCHE-1075213

PATIENT
  Sex: Female
  Weight: 56 kg

DRUGS (12)
  1. COTRIM [Concomitant]
     Dosage: 1 DD
     Route: 048
     Dates: start: 20120221
  2. MABTHERA [Suspect]
     Indication: MALIGNANT LYMPHOID NEOPLASM
     Dosage: LAST DOSE PRIOR TO SAE: 27/MAR/2012
     Route: 042
     Dates: start: 20120313
  3. PREDNISOLONE [Suspect]
     Indication: MALIGNANT LYMPHOID NEOPLASM
     Dosage: LAST DOSE PRIOR TO SAE: 18/MAR/2012
     Route: 048
     Dates: start: 20120313
  4. DEXAMETHASONE SODIUM PHOSPHATE [Concomitant]
     Indication: BRAIN OEDEMA
     Dosage: 2 DD
     Route: 048
     Dates: start: 20120207
  5. FLUCONAZOLE [Concomitant]
     Dosage: 1 DD
     Route: 048
     Dates: start: 20120221
  6. CIPROFLOXACIN HCL [Concomitant]
     Dosage: 2 DD
     Route: 048
     Dates: start: 20120221
  7. CARMUSTINE [Suspect]
     Indication: MALIGNANT LYMPHOID NEOPLASM
     Dosage: LAST DOSE PRIOR TO SAE: 17/MAR/2012
     Route: 042
     Dates: start: 20120317
  8. METHOTREXATE [Suspect]
     Indication: MALIGNANT LYMPHOID NEOPLASM
     Dosage: LAST DOSE PRIOR TO SAE: 28/MAR/2012
     Route: 042
     Dates: start: 20120314
  9. TENIPOSIDE [Suspect]
     Indication: MALIGNANT LYMPHOID NEOPLASM
     Dosage: LAST DOSE PRIOR TO SAE: 16/MAR/2012
     Route: 042
     Dates: start: 20120315
  10. VANCOMYCIN [Concomitant]
     Dates: start: 20120512
  11. VANCOMYCIN [Concomitant]
     Indication: INFECTION
     Dosage: 2 DD
     Route: 042
     Dates: start: 20120419, end: 20120427
  12. PANTOPRAZOLE [Concomitant]
     Indication: PROPHYLAXIS AGAINST GASTROINTESTINAL ULCER
     Route: 048
     Dates: start: 20120207

REACTIONS (1)
  - MYCOTIC ANEURYSM [None]
